FAERS Safety Report 5606274-3 (Version None)
Quarter: 2008Q1

REPORT INFORMATION
  Report Type: 
  Country: None (occurrence: None)
  Receive Date: 20080129
  Receipt Date: 20070417
  Transmission Date: 20080703
  Serious: No
  Sender: FDA-Public Use
  Company Number: A0647654A

PATIENT
  Age: 0 Year
  Sex: Male

DRUGS (2)
  1. BUPROPION HYDROCHLORIDE [Suspect]
     Indication: POSTPARTUM DEPRESSION
     Dosage: 100MG TWICE PER DAY
     Dates: start: 20070404, end: 20070413
  2. NO CONCURRENT MEDICATION [Concomitant]

REACTIONS (4)
  - DRUG EXPOSURE VIA BREAST MILK [None]
  - INSOMNIA [None]
  - IRRITABILITY [None]
  - NERVOUSNESS [None]
